FAERS Safety Report 16490219 (Version 1)
Quarter: 2019Q2

REPORT INFORMATION
  Report Type: Report from Study
  Country: US (occurrence: US)
  Receive Date: 20190628
  Receipt Date: 20190628
  Transmission Date: 20190711
  Serious: Yes (Hospitalization, Other)
  Sender: FDA-Public Use
  Company Number: US-TAKEDA-2019TUS039863

PATIENT
  Age: 63 Year
  Sex: Male
  Weight: 87.8 kg

DRUGS (11)
  1. IXAZOMIB [Suspect]
     Active Substance: IXAZOMIB
     Indication: LYMPHOMA
     Dosage: UNK
     Route: 065
     Dates: start: 20180612
  2. SULFAZINE [Concomitant]
     Active Substance: SULFASALAZINE
     Indication: REITER^S SYNDROME
     Dosage: 2000 MILLIGRAM, QD
     Route: 048
     Dates: start: 1998
  3. RITUXIMAB. [Suspect]
     Active Substance: RITUXIMAB
     Indication: LYMPHOMA
     Dosage: UNK
     Route: 065
     Dates: start: 20180612
  4. LENALIDOMIDE [Suspect]
     Active Substance: LENALIDOMIDE
     Indication: LYMPHOMA
     Dosage: UNK
     Route: 065
     Dates: start: 20180612
  5. IXAZOMIB [Suspect]
     Active Substance: IXAZOMIB
     Dosage: 4 MILLIGRAM
     Route: 048
     Dates: start: 20190619
  6. FOLIC ACID. [Concomitant]
     Active Substance: FOLIC ACID
     Indication: REITER^S SYNDROME
     Dosage: 1 MILLIGRAM, QD
     Route: 048
     Dates: start: 1998
  7. MOTRIN [Concomitant]
     Active Substance: IBUPROFEN
     Indication: REITER^S SYNDROME
     Dosage: 800 MILLIGRAM, Q8HR
     Route: 048
     Dates: start: 1998
  8. PROTONIX                           /00661201/ [Concomitant]
     Active Substance: OMEPRAZOLE
     Indication: BARRETT^S OESOPHAGUS
     Dosage: 40 MILLIGRAM, QD
     Route: 048
     Dates: start: 2003
  9. ACYCLOVIR                          /00587301/ [Concomitant]
     Active Substance: ACYCLOVIR
     Indication: ANTIVIRAL PROPHYLAXIS
     Dosage: 400 MILLIGRAM, BID
     Route: 048
     Dates: start: 20180612
  10. LENALIDOMIDE [Suspect]
     Active Substance: LENALIDOMIDE
     Dosage: 20 MILLIGRAM
     Route: 048
     Dates: start: 20190624
  11. ELIQUIS [Concomitant]
     Active Substance: APIXABAN
     Indication: VENOUS THROMBOSIS
     Dosage: 5 MILLIGRAM, QD
     Route: 048
     Dates: start: 201806

REACTIONS (1)
  - Chest pain [Unknown]

NARRATIVE: CASE EVENT DATE: 20190623
